FAERS Safety Report 6266604-9 (Version None)
Quarter: 2009Q3

REPORT INFORMATION
  Report Type: 
  Country: None (occurrence: None)
  Receive Date: 20090709
  Receipt Date: 20090625
  Transmission Date: 20100115
  Serious: Yes (Other)
  Sender: FDA-Public Use
  Company Number: 237151K09USA

PATIENT
  Age: 36 Year
  Sex: Male
  Weight: 91 kg

DRUGS (8)
  1. REBIF [Suspect]
     Indication: MULTIPLE SCLEROSIS
     Dosage: 44 MCG, 3 IN 1 WEEKS, SUBCUTANEOUS
     Route: 058
     Dates: start: 20090301, end: 20090625
  2. WELLBUTRIN [Suspect]
     Indication: DEPRESSION
     Dates: start: 20090301
  3. MORPHINE SULFATE INJ [Suspect]
     Indication: LIGAMENT RUPTURE
     Dates: start: 20090601
  4. GABAPENTIN [Concomitant]
  5. AMBIEN [Concomitant]
  6. HYDROCODONE (HYDROCODONE) [Concomitant]
  7. XANAX [Concomitant]
  8. NAPROXEN [Concomitant]

REACTIONS (5)
  - ALCOHOL POISONING [None]
  - CRYING [None]
  - PAIN IN EXTREMITY [None]
  - PARAESTHESIA [None]
  - SUICIDE ATTEMPT [None]
